FAERS Safety Report 11678121 (Version 1)
Quarter: 2015Q4

REPORT INFORMATION
  Report Type: Spontaneous
  Country: US (occurrence: US)
  Receive Date: 20151027
  Receipt Date: 20151027
  Transmission Date: 20160304
  Serious: No
  Sender: FDA-Public Use
  Company Number: US-ELI_LILLY_AND_COMPANY-US201008000564

PATIENT
  Sex: Female

DRUGS (7)
  1. FORTEO [Interacting]
     Active Substance: TERIPARATIDE
     Dosage: 20 UG, DAILY (1/D)
  2. IRON [Interacting]
     Active Substance: IRON
     Indication: ANAEMIA
  3. CYCLOBENZAPRINE [Interacting]
     Active Substance: CYCLOBENZAPRINE
  4. FORTEO [Suspect]
     Active Substance: TERIPARATIDE
     Indication: OSTEOPOROSIS
     Dosage: 20 UG, DAILY (1/D)
  5. ARTHROTEC [Interacting]
     Active Substance: DICLOFENAC SODIUM\MISOPROSTOL
  6. LISINOPRIL. [Interacting]
     Active Substance: LISINOPRIL
  7. PREDNISONE. [Interacting]
     Active Substance: PREDNISONE

REACTIONS (10)
  - Joint swelling [Unknown]
  - Drug interaction [Unknown]
  - Nausea [Not Recovered/Not Resolved]
  - Patella fracture [Unknown]
  - Arthralgia [Unknown]
  - Gait disturbance [Unknown]
  - Decreased appetite [Not Recovered/Not Resolved]
  - Dysgeusia [Unknown]
  - Food aversion [Unknown]
  - Weight decreased [Unknown]
